FAERS Safety Report 13141925 (Version 2)
Quarter: 2017Q1

REPORT INFORMATION
  Report Type: Spontaneous
  Country: PL (occurrence: PL)
  Receive Date: 20170123
  Receipt Date: 20170126
  Transmission Date: 20170428
  Serious: Yes (Hospitalization)
  Sender: FDA-Public Use
  Company Number: PL-B.I. PHARMACEUTICALS,INC./RIDGEFIELD-2017-BI-002729

PATIENT
  Sex: Female

DRUGS (1)
  1. GILOTRIF [Suspect]
     Active Substance: AFATINIB
     Indication: LUNG ADENOCARCINOMA
     Route: 065
     Dates: start: 201603, end: 20161228

REACTIONS (8)
  - White blood cell count increased [Unknown]
  - Total lung capacity decreased [Unknown]
  - Asthenia [Unknown]
  - Nasal mucosal disorder [Unknown]
  - Oral mucosal blistering [Unknown]
  - Diarrhoea [Unknown]
  - Lung cancer metastatic [Unknown]
  - Paronychia [Unknown]

NARRATIVE: CASE EVENT DATE: 20161228
